FAERS Safety Report 10075667 (Version 4)
Quarter: 2015Q3

REPORT INFORMATION
  Report Type: Spontaneous
  Country: US (occurrence: US)
  Receive Date: 20140414
  Receipt Date: 20150903
  Transmission Date: 20151125
  Serious: Yes (Hospitalization, Congenital Anomaly, Other)
  Sender: FDA-Public Use
  Company Number: US-ELI_LILLY_AND_COMPANY-US201404001899

PATIENT
  Age: 0 Day

DRUGS (3)
  1. PROZAC [Suspect]
     Active Substance: FLUOXETINE HYDROCHLORIDE
     Indication: DEPRESSION
     Dosage: 20 MG, QD
     Route: 064
  2. PRENATABS RX [Concomitant]
     Active Substance: VITAMINS
     Route: 064
  3. PAXIL [Concomitant]
     Active Substance: PAROXETINE HYDROCHLORIDE
     Route: 064

REACTIONS (20)
  - Neuralgia [Unknown]
  - Skull malformation [Unknown]
  - Attention deficit/hyperactivity disorder [Unknown]
  - Seizure [Recovered/Resolved]
  - Cardiac disorder [Unknown]
  - Developmental delay [Unknown]
  - Central nervous system lesion [Unknown]
  - Aggression [Unknown]
  - Optic neuritis [Unknown]
  - Microcephaly [Unknown]
  - Cerebral ventricle dilatation [Unknown]
  - Hydrocephalus [Unknown]
  - Cerebrovascular accident [Unknown]
  - Staring [Unknown]
  - Tourette^s disorder [Unknown]
  - Foetal exposure during pregnancy [Recovered/Resolved]
  - Premature baby [Unknown]
  - Headache [Unknown]
  - Macrocephaly [Unknown]
  - Transient tachypnoea of the newborn [Recovered/Resolved]

NARRATIVE: CASE EVENT DATE: 19981220
